FAERS Safety Report 5160815-1 (Version None)
Quarter: 2006Q4

REPORT INFORMATION
  Report Type: 
  Country: None (occurrence: None)
  Receive Date: 20061129
  Receipt Date: 20061120
  Transmission Date: 20070319
  Serious: Yes (Other)
  Sender: FDA-Public Use
  Company Number: GB-ABBOTT-06P-167-0351177-00

PATIENT
  Age: 46 Year
  Sex: Male

DRUGS (4)
  1. CLARITHROMYCIN [Suspect]
     Indication: HELICOBACTER INFECTION
     Route: 048
     Dates: start: 20061012, end: 20061017
  2. CLARITHROMYCIN [Suspect]
     Route: 048
     Dates: start: 20061017, end: 20061018
  3. CITALOPRAM HYDROBROMIDE [Concomitant]
     Indication: ANXIETY
     Route: 048
     Dates: start: 20060920
  4. LANSOPRAZOLE [Concomitant]
     Indication: PULMONARY VASCULAR DISORDER
     Route: 048
     Dates: start: 20060616

REACTIONS (1)
  - RHABDOMYOLYSIS [None]
